FAERS Safety Report 8624373-9 (Version None)
Quarter: 2012Q3

REPORT INFORMATION
  Report Type: 
  Country: None (occurrence: None)
  Receive Date: 20120827
  Receipt Date: 20120823
  Transmission Date: 20120928
  Serious: Yes (Life-Threatening, Hospitalization)
  Sender: FDA-Public Use
  Company Number: US-ASTRAZENECA-2012SE61180

PATIENT
  Age: 48 Year
  Sex: Female

DRUGS (1)
  1. FASLODEX [Suspect]
     Route: 030

REACTIONS (3)
  - RESPIRATORY FAILURE [None]
  - WEIGHT INCREASED [None]
  - NEOPLASM PROGRESSION [None]
